FAERS Safety Report 5067099-3 (Version None)
Quarter: 2006Q3

REPORT INFORMATION
  Report Type: 
  Country: None (occurrence: None)
  Receive Date: 20060801
  Receipt Date: 20060720
  Transmission Date: 20061208
  Serious: Yes (Other)
  Sender: FDA-Public Use
  Company Number: JP-BRISTOL-MYERS SQUIBB COMPANY-13448261

PATIENT
  Age: 4 Year
  Sex: Female

DRUGS (6)
  1. CISPLATIN [Suspect]
     Indication: LUNG NEOPLASM
  2. CYTOXAN [Suspect]
     Indication: LUNG NEOPLASM
  3. VINCRISTINE SULFATE [Suspect]
     Indication: LUNG NEOPLASM
  4. ADRIAMYCIN PFS [Suspect]
     Indication: LUNG NEOPLASM
  5. COSMEGEN [Suspect]
     Indication: LUNG NEOPLASM
  6. RADIATION THERAPY [Suspect]
     Indication: LUNG NEOPLASM

REACTIONS (2)
  - MALIGNANT NEOPLASM PROGRESSION [None]
  - MULTIPLE SCLEROSIS [None]
